FAERS Safety Report 8126253-4 (Version None)
Quarter: 2012Q1

REPORT INFORMATION
  Report Type: 
  Country: None (occurrence: None)
  Receive Date: 20120209
  Receipt Date: 20120207
  Transmission Date: 20120608
  Serious: Yes (Death, Life-Threatening)
  Sender: FDA-Public Use
  Company Number: PHHY2011PH86107

PATIENT
  Age: 71 Year
  Sex: Male

DRUGS (2)
  1. GLEEVEC [Suspect]
     Indication: CHRONIC MYELOID LEUKAEMIA
     Dosage: 300 MG ONCE DAILY
     Route: 048
     Dates: start: 20040930
  2. GLEEVEC [Suspect]
     Dosage: 600 MG PER DAY
     Route: 048

REACTIONS (2)
  - LUNG ADENOCARCINOMA [None]
  - NEOPLASM MALIGNANT [None]
